FAERS Safety Report 18834998 (Version 1)
Quarter: 2021Q1

REPORT INFORMATION
  Report Type: Report from Study
  Country: BR (occurrence: BR)
  Receive Date: 20210203
  Receipt Date: 20210203
  Transmission Date: 20210419
  Serious: Yes (Other)
  Sender: FDA-Public Use
  Company Number: NVSC2021BR019054

PATIENT
  Age: 52 Year
  Sex: Female

DRUGS (4)
  1. LETROZOLE. [Suspect]
     Active Substance: LETROZOLE
     Indication: PRODUCT USED FOR UNKNOWN INDICATION
     Dosage: UNK
     Route: 065
     Dates: start: 202004
  2. XGEVA [Concomitant]
     Active Substance: DENOSUMAB
     Indication: BONE DISORDER
     Route: 065
  3. ALPRAZOLAM. [Suspect]
     Active Substance: ALPRAZOLAM
     Indication: SLEEP DISORDER
     Dosage: APPROXIMATELY 7 MONTHS
     Route: 065
  4. KISQALI [Suspect]
     Active Substance: RIBOCICLIB
     Indication: PRODUCT USED FOR UNKNOWN INDICATION
     Dosage: 3 DF, QD (3 TABLETS PER DAY)
     Route: 065
     Dates: start: 20200514

REACTIONS (26)
  - Mental impairment [Unknown]
  - Nail disorder [Unknown]
  - Movement disorder [Unknown]
  - Hypersensitivity [Unknown]
  - Headache [Recovering/Resolving]
  - Fear [Unknown]
  - Hypotension [Unknown]
  - Fatigue [Unknown]
  - Insomnia [Recovering/Resolving]
  - Burning sensation [Unknown]
  - Stress [Unknown]
  - Illness [Unknown]
  - Neck pain [Unknown]
  - Gait disturbance [Unknown]
  - Decreased appetite [Unknown]
  - Pelvic pain [Unknown]
  - Dyspnoea [Unknown]
  - Nausea [Unknown]
  - Anxiety [Unknown]
  - Metastasis [Unknown]
  - Osteoporosis [Unknown]
  - Yellow skin [Unknown]
  - Liver disorder [Unknown]
  - Sleep disorder [Unknown]
  - Ageusia [Unknown]
  - Malaise [Unknown]

NARRATIVE: CASE EVENT DATE: 20200514
